FAERS Safety Report 4566711-2 (Version None)
Quarter: 2005Q1

REPORT INFORMATION
  Report Type: 
  Country: None (occurrence: None)
  Receive Date: 20050201
  Receipt Date: 20011002
  Transmission Date: 20050727
  Serious: Yes (Other)
  Sender: FDA-Public Use
  Company Number: US-BRISTOL-MYERS SQUIBB COMPANY-11013489

PATIENT
  Age: 42 Year
  Sex: Female

DRUGS (22)
  1. STADOL [Suspect]
     Indication: HEADACHE
     Route: 045
     Dates: start: 19961107
  2. CEPHALEXIN [Concomitant]
  3. TRAZODONE HCL [Concomitant]
  4. SERZONE [Concomitant]
  5. ALPRAZOLAM [Concomitant]
  6. HYDROCODONE + ACETAMINOPHEN [Concomitant]
  7. PHENERGAN [Concomitant]
  8. PROZAC [Concomitant]
  9. AMBIEN [Concomitant]
  10. CLONAZEPAM [Concomitant]
  11. ZYPREXA [Concomitant]
  12. FLUVOXAMINE [Concomitant]
  13. PREMARIN [Concomitant]
  14. NAPROXEN [Concomitant]
  15. NAPROXEN SODIUM [Concomitant]
  16. WELLBUTRIN SR [Concomitant]
  17. MACROBID [Concomitant]
  18. PHENAZOPYRIDINE HCL TAB [Concomitant]
  19. LORAZEPAM [Concomitant]
  20. FLUOXETINE [Concomitant]
  21. ACETAMINOPHEN W/ PROPOXYPHENE HCL [Concomitant]
     Dosage: 650MG ACETAMINOPHEN + 100MG PROPOXYPHENE NAPSYLATE
  22. MEPROZINE [Concomitant]
     Dosage: 50MG/25MG CAPSULE

REACTIONS (1)
  - DEPENDENCE [None]
